FAERS Safety Report 9959516 (Version 1)
Quarter: 2014Q1

REPORT INFORMATION
  Report Type: Spontaneous
  Country: US (occurrence: None)
  Receive Date: 20140228
  Receipt Date: 20140228
  Transmission Date: 20141002
  Serious: Yes (Hospitalization)
  Sender: FDA-Public Use
  Company Number: None

PATIENT
  Age: 50 Year
  Sex: Male

DRUGS (4)
  1. ZEMPLAR [Suspect]
     Route: 048
     Dates: start: 20130708, end: 201311
  2. RENVELA [Concomitant]
  3. CALCITROL [Concomitant]
  4. PRESIUM [Concomitant]

REACTIONS (1)
  - Hospitalisation [None]
